FAERS Safety Report 8922160 (Version 4)
Quarter: 2013Q1

REPORT INFORMATION
  Report Type: Spontaneous
  Country: JP (occurrence: JP)
  Receive Date: 20121123
  Receipt Date: 20130204
  Transmission Date: 20140127
  Serious: Yes (Hospitalization)
  Sender: FDA-Public Use
  Company Number: PHHY2012JP105146

PATIENT
  Age: 85 Year
  Sex: Female
  Weight: 37 kg

DRUGS (8)
  1. EXELON PATCH [Suspect]
     Indication: DEMENTIA ALZHEIMER^S TYPE
     Dosage: 4.5 MG, DAILY
     Route: 062
     Dates: start: 20120817, end: 20120913
  2. EXELON PATCH [Suspect]
     Dosage: 9 MG, DAILY
     Route: 062
     Dates: start: 20120914, end: 20121011
  3. EXELON PATCH [Suspect]
     Dosage: 13.5 MG, DAILY
     Route: 062
     Dates: start: 20121012, end: 20121108
  4. EXELON PATCH [Suspect]
     Dosage: 18 MG, DAILY
     Route: 062
     Dates: start: 20121109, end: 20121110
  5. EXELON PATCH [Suspect]
     Dosage: 121.5 MG, (ONE 13.5 MG PATCH AND SIX 18 MG PATCHES)
     Route: 062
     Dates: start: 20121110, end: 20121113
  6. AMLODIPINE [Concomitant]
     Route: 048
     Dates: start: 20120817
  7. BAYASPIRIN [Concomitant]
     Indication: DEMENTIA
     Dosage: 100 MG, DAILY
  8. MUCOSTA [Concomitant]
     Indication: DEMENTIA
     Dosage: 100 MG, DAILY

REACTIONS (14)
  - Depressed level of consciousness [Recovered/Resolved]
  - Miosis [Recovered/Resolved]
  - Urinary incontinence [Recovered/Resolved]
  - Muscle contractions involuntary [Recovered/Resolved]
  - Somnolence [Recovered/Resolved]
  - Tremor [Recovered/Resolved]
  - Abdominal pain [Recovered/Resolved]
  - Dehydration [Recovering/Resolving]
  - Overdose [Recovering/Resolving]
  - Blood cholinesterase decreased [Recovering/Resolving]
  - Lacrimation increased [Recovering/Resolving]
  - Dry mouth [Unknown]
  - Incorrect dose administered [Unknown]
  - Inappropriate schedule of drug administration [Unknown]
